FAERS Safety Report 8965703 (Version 1)
Quarter: 2012Q4

REPORT INFORMATION
  Report Type: Spontaneous
  Country: US (occurrence: None)
  Receive Date: 20121206
  Receipt Date: 20121206
  Transmission Date: 20130627
  Serious: Yes (Hospitalization)
  Sender: FDA-Public Use
  Company Number: JPI-P-026646

PATIENT
  Age: 59 Year
  Sex: Female
  Weight: 81.19 kg

DRUGS (12)
  1. XYREM (500 MILLIGRAM/MILLILITERS, SOLUTION) (SODIUM OXYBATE) [Suspect]
     Indication: CATAPLEXY
     Dosage: 5.5 gm (2.75 gm, 2 in 1 D), Oral
     Route: 048
     Dates: start: 20120802
  2. DULOXETINE HYDROCHLORIDE [Concomitant]
  3. PRAMIPEXOLE DIHYDROCHLORIDE [Concomitant]
  4. DICLOFENAC [Concomitant]
  5. HYDROCODONE BITARTRATE AND ACETAMINOPHEN [Concomitant]
  6. ARMODAFINIL [Concomitant]
  7. TRAZODONE [Concomitant]
  8. GABAPENTIN [Concomitant]
  9. ARMOUR THYROID [Concomitant]
  10. FESOTERODINE FUMARATE [Concomitant]
  11. CARBIDOPA/LEVODOPA [Concomitant]
  12. VITAMIN B12 [Concomitant]

REACTIONS (9)
  - Weight decreased [None]
  - Fall [None]
  - Contusion [None]
  - Joint swelling [None]
  - Dysarthria [None]
  - Impaired driving ability [None]
  - Hallucination [None]
  - Sensation of heaviness [None]
  - Joint stiffness [None]
